FAERS Safety Report 7111404 (Version 9)
Quarter: 2012Q4

REPORT INFORMATION
  Report Type: Report from Study
  Country: CN (occurrence: CN)
  Receive Date: 20090911
  Receipt Date: 20120907
  Transmission Date: 20130627
  Serious: Yes (Death, Life-Threatening, Hospitalization, Other)
  Sender: FDA-Public Use
  Company Number: CN-JNJFOC-20090707740

PATIENT
  Age: 54 Year
  Sex: Male
  Weight: 69 kg

DRUGS (1)
  1. INFLIXIMAB, RECOMBINANT [Suspect]
     Indication: PSORIASIS
     Route: 042
     Dates: start: 20090511, end: 20090720

REACTIONS (7)
  - Pancreatic carcinoma [Fatal]
  - Metastases to liver [Not Recovered/Not Resolved]
  - Metastases to spleen [Not Recovered/Not Resolved]
  - Acute respiratory distress syndrome [Fatal]
  - Pulmonary embolism [Fatal]
  - Deep vein thrombosis [Unknown]
  - Drug-induced liver injury [Not Recovered/Not Resolved]
